APPROVED DRUG PRODUCT: QUINIDINE SULFATE
Active Ingredient: QUINIDINE SULFATE
Strength: 300MG
Dosage Form/Route: TABLET;ORAL
Application: A088072 | Product #001
Applicant: EPIC PHARMA LLC
Approved: Sep 26, 1983 | RLD: No | RS: Yes | Type: RX